FAERS Safety Report 22941087 (Version 5)
Quarter: 2024Q1

REPORT INFORMATION
  Report Type: Spontaneous
  Country: FR (occurrence: FR)
  Receive Date: 20230913
  Receipt Date: 20240105
  Transmission Date: 20240409
  Serious: Yes (Other)
  Sender: FDA-Public Use
  Company Number: FR-EUSA PHARMA (UK) LIMITED-2023FR000567

PATIENT
  Age: 6 Year
  Sex: Female
  Weight: 21.4 kg

DRUGS (4)
  1. TEMOZOLOMIDE [Suspect]
     Active Substance: TEMOZOLOMIDE
     Indication: Neuroblastoma
     Dosage: 150 MG/M2 DAILY, FREQ: CYCLICAL ON DAY 1 TO DAY 5
     Route: 065
  2. TOPOTECAN [Suspect]
     Active Substance: TOPOTECAN HYDROCHLORIDE
     Indication: Neuroblastoma
     Dosage: 0.75MG/M2, QD, ON DAY 1 TO DAY 5.
     Route: 065
  3. DINUTUXIMAB BETA [Suspect]
     Active Substance: DINUTUXIMAB BETA
     Indication: Neuroblastoma
     Dosage: CYCLE 1, 10 MG/M2, QD, ON DAYS 1 TO 7 (60 MG PER CYCLE)
     Route: 065
     Dates: start: 2023, end: 2023
  4. DINUTUXIMAB BETA [Suspect]
     Active Substance: DINUTUXIMAB BETA
     Dosage: CYCLE 2, 10 MG/M2/DAY, ON DAYS 1 TO 7 (60 MG PER CYCLE) (ACTUAL DOSE TAKEN 8.6MG/DAY)
     Route: 042
     Dates: start: 20230814, end: 20230824

REACTIONS (3)
  - Malignant neoplasm progression [Unknown]
  - Pyrexia [Recovered/Resolved]
  - Off label use [Recovered/Resolved]

NARRATIVE: CASE EVENT DATE: 20230101
